FAERS Safety Report 5522866-4 (Version None)
Quarter: 2007Q4

REPORT INFORMATION
  Report Type: 
  Country: None (occurrence: None)
  Receive Date: 20071121
  Receipt Date: 20071116
  Transmission Date: 20080405
  Serious: Yes (Other)
  Sender: FDA-Public Use
  Company Number: US-RB-008245-07

PATIENT
  Sex: Female

DRUGS (5)
  1. SUBUTEX [Suspect]
     Indication: DRUG DEPENDENCE
     Route: 060
     Dates: start: 20071001
  2. SUBOXONE [Suspect]
     Indication: DRUG DEPENDENCE
     Route: 060
     Dates: start: 20070301, end: 20070401
  3. SUBOXONE [Suspect]
     Route: 060
     Dates: start: 20061201, end: 20070301
  4. SUBOXONE [Suspect]
     Route: 060
     Dates: start: 20070401, end: 20070701
  5. SUBOXONE [Suspect]
     Route: 060
     Dates: start: 20070701, end: 20071001

REACTIONS (2)
  - ABORTION SPONTANEOUS [None]
  - DRUG EXPOSURE DURING PREGNANCY [None]
